FAERS Safety Report 10039852 (Version 1)
Quarter: 2014Q1

REPORT INFORMATION
  Report Type: Spontaneous
  Country: SE (occurrence: SE)
  Receive Date: 20140326
  Receipt Date: 20140326
  Transmission Date: 20141002
  Serious: Yes (Other)
  Sender: FDA-Public Use
  Company Number: SE-JNJFOC-20140310052

PATIENT
  Age: 29 Year
  Sex: Female
  Weight: 59 kg

DRUGS (1)
  1. CONCERTA [Suspect]
     Indication: PRODUCT USED FOR UNKNOWN INDICATION
     Route: 048

REACTIONS (14)
  - Palpitations [Not Recovered/Not Resolved]
  - Tremor [Not Recovered/Not Resolved]
  - Myalgia [Not Recovered/Not Resolved]
  - Hyperhidrosis [Not Recovered/Not Resolved]
  - Pain in extremity [Not Recovered/Not Resolved]
  - Tension [Not Recovered/Not Resolved]
  - Skin exfoliation [Not Recovered/Not Resolved]
  - Hypoaesthesia [Not Recovered/Not Resolved]
  - Pruritus [Not Recovered/Not Resolved]
  - Drug effect incomplete [Not Recovered/Not Resolved]
  - Contusion [Not Recovered/Not Resolved]
  - Aggression [Not Recovered/Not Resolved]
  - Mood swings [Not Recovered/Not Resolved]
  - Alopecia [Not Recovered/Not Resolved]
